FAERS Safety Report 25282137 (Version 6)
Quarter: 2025Q4

REPORT INFORMATION
  Report Type: Spontaneous
  Country: CA (occurrence: CA)
  Receive Date: 20250508
  Receipt Date: 20251028
  Transmission Date: 20260118
  Serious: Yes (Hospitalization, Other)
  Sender: KARYOPHARM THERAPEUTICS
  Company Number: CA-KARYOPHARM-2025KPT100062

PATIENT

DRUGS (2)
  1. SELINEXOR [Suspect]
     Active Substance: SELINEXOR
     Indication: Plasma cell myeloma
     Dosage: 100 MILLIGRAM(S) EVERY 1 WEEK
     Route: 048
     Dates: start: 20250307, end: 202510
  2. DEXAMETHASONE [Concomitant]
     Active Substance: DEXAMETHASONE

REACTIONS (16)
  - Psychiatric symptom [Unknown]
  - Renal impairment [Unknown]
  - Anxiety [Unknown]
  - Eating disorder [Unknown]
  - Full blood count abnormal [Unknown]
  - Pain [Unknown]
  - Diarrhoea [Unknown]
  - Decreased appetite [Recovered/Resolved]
  - Fatigue [Unknown]
  - Weight decreased [Unknown]
  - Dehydration [Unknown]
  - Nausea [Not Recovered/Not Resolved]
  - Vomiting [Unknown]
  - Off label use [Unknown]
  - Product dose omission issue [Unknown]
  - Treatment noncompliance [Not Recovered/Not Resolved]

NARRATIVE: CASE EVENT DATE: 20250101
